FAERS Safety Report 7427961-0 (Version None)
Quarter: 2011Q2

REPORT INFORMATION
  Report Type: 
  Country: None (occurrence: None)
  Receive Date: 20110421
  Receipt Date: 20110318
  Transmission Date: 20111010
  Serious: Yes (Other)
  Sender: FDA-Public Use
  Company Number: US-BAYER-201019397NA

PATIENT
  Age: 23 Year
  Sex: Female
  Weight: 56.689 kg

DRUGS (7)
  1. ADDERALL 10 [Concomitant]
  2. ACYCLOVIR [Concomitant]
     Indication: HERPES VIRUS INFECTION
  3. YASMIN [Suspect]
     Indication: CONTRACEPTION
     Dosage: UNK UNK, UNK
     Route: 048
     Dates: start: 20070701, end: 20081001
  4. OCELLA [Suspect]
     Indication: ACNE
  5. YASMIN [Suspect]
     Indication: ACNE
  6. MULTI-VITAMINS [Concomitant]
  7. OCELLA [Suspect]
     Indication: PRODUCT USED FOR UNKNOWN INDICATION
     Dosage: UNK
     Route: 065
     Dates: start: 20070701, end: 20081001

REACTIONS (3)
  - CHOLECYSTITIS CHRONIC [None]
  - CHOLELITHIASIS [None]
  - GALLBLADDER DISORDER [None]
